FAERS Safety Report 10469061 (Version 10)
Quarter: 2018Q3

REPORT INFORMATION
  Report Type: Spontaneous
  Country: DE (occurrence: DE)
  Receive Date: 20140923
  Receipt Date: 20180918
  Transmission Date: 20181010
  Serious: Yes (Other)
  Sender: FDA-Public Use
  Company Number: DE-PFIZER INC-2014258022

PATIENT
  Age: 40 Year
  Sex: Female
  Weight: 77 kg

DRUGS (8)
  1. METHYLDOPA. [Suspect]
     Active Substance: METHYLDOPA
     Indication: HYPERTENSION
     Dosage: 250 MG, 4X/DAY; 7.4. ? 35.3. GESTATIONAL WEEK
     Route: 048
     Dates: start: 20130502, end: 20131113
  2. L?THYROXIN [Suspect]
     Active Substance: LEVOTHYROXINE SODIUM
     Indication: AUTOIMMUNE THYROIDITIS
     Dosage: 75 UG, DAILY; 0. ? 35.3. GESTATIONAL WEEK
     Route: 048
     Dates: start: 20130310, end: 20131113
  3. XELEVIA [Suspect]
     Active Substance: SITAGLIPTIN PHOSPHATE
     Indication: TYPE 2 DIABETES MELLITUS
     Dosage: 100 MG, DAILY; 0. ? 6+4DAYS. GESTATIONAL WEEK
     Route: 048
     Dates: start: 20130310, end: 20130425
  4. SITAGLIPTIN [Suspect]
     Active Substance: SITAGLIPTIN
     Dosage: UNK
     Route: 065
  5. RAMIPRIL. [Suspect]
     Active Substance: RAMIPRIL
     Indication: HYPERTENSION
     Dosage: 10 MG, DAILY; 0. ? 6+4DAY. GESTATIONAL WEEK
     Route: 048
     Dates: start: 20130310, end: 20130425
  6. FOLIC ACID. [Concomitant]
     Active Substance: FOLIC ACID
  7. METFORMIN HCL [Suspect]
     Active Substance: METFORMIN HYDROCHLORIDE
     Indication: TYPE 2 DIABETES MELLITUS
     Dosage: 1000 MG, 2X/DAY; 0 ? 6+4DAYS. GESTATIONAL WEEK
     Route: 048
     Dates: start: 20130310, end: 20130425
  8. METOPROLOL. [Suspect]
     Active Substance: METOPROLOL
     Indication: HYPERTENSION
     Dosage: 47.5 MG, 2X/DAY; 7.4. ? 35.3. GESTATIONAL WEEK
     Route: 048
     Dates: start: 20130502, end: 20131113

REACTIONS (2)
  - Placental insufficiency [Unknown]
  - Polyhydramnios [Unknown]
